FAERS Safety Report 7311310-2 (Version None)
Quarter: 2011Q1

REPORT INFORMATION
  Report Type: 
  Country: None (occurrence: None)
  Receive Date: 20110224
  Receipt Date: 20110215
  Transmission Date: 20110831
  Serious: Yes (Death, Other)
  Sender: FDA-Public Use
  Company Number: SG-CELGENEUS-141-21880-11010292

PATIENT
  Age: 80 Year
  Sex: Male

DRUGS (3)
  1. VELCADE [Concomitant]
     Indication: MULTIPLE MYELOMA
     Route: 065
     Dates: start: 20101215, end: 20101224
  2. REVLIMID [Suspect]
     Indication: MULTIPLE MYELOMA
     Route: 048
     Dates: start: 20101215, end: 20101224
  3. DEXAMETHASONE [Concomitant]
     Indication: MULTIPLE MYELOMA
     Route: 065
     Dates: start: 20101215, end: 20101224

REACTIONS (4)
  - PNEUMONIA [None]
  - CEREBROVASCULAR ACCIDENT [None]
  - RENAL IMPAIRMENT [None]
  - UROSEPSIS [None]
